FAERS Safety Report 7313767-X (Version None)
Quarter: 2011Q1

REPORT INFORMATION
  Report Type: 
  Country: None (occurrence: None)
  Receive Date: 20110225
  Receipt Date: 20110223
  Transmission Date: 20110831
  Serious: Yes (Other)
  Sender: FDA-Public Use
  Company Number: JP-ROXANE LABORATORIES, INC.-2011-RO-00218RO

PATIENT
  Age: 62 Year
  Sex: Male
  Weight: 71 kg

DRUGS (15)
  1. LIDOCAINE [Suspect]
     Indication: LOCAL ANAESTHESIA
  2. FENTANYL [Suspect]
  3. MIDAZOLAM HCL [Suspect]
     Indication: INDUCTION OF ANAESTHESIA
     Dosage: 2 MG
  4. BUPIVACAINE HCL [Suspect]
  5. PROPOFOL [Suspect]
  6. LIDOCAINE [Suspect]
     Indication: NERVE BLOCK
  7. FENTANYL [Suspect]
     Indication: INDUCTION AND MAINTENANCE OF ANAESTHESIA
  8. ATROPINE [Suspect]
  9. NEOSTIGMINE [Suspect]
  10. FENTANYL [Suspect]
  11. BUPIVACAINE HCL [Suspect]
     Indication: NERVE BLOCK
  12. LIDOCAINE [Suspect]
  13. PROPOFOL [Suspect]
     Indication: INDUCTION AND MAINTENANCE OF ANAESTHESIA
  14. PROPOFOL [Suspect]
  15. VECURONIUM BROMIDE [Suspect]

REACTIONS (1)
  - NEUROTOXICITY [None]
